FAERS Safety Report 17678576 (Version 1)
Quarter: 2020Q2

REPORT INFORMATION
  Report Type: Spontaneous
  Country: US (occurrence: US)
  Receive Date: 20200417
  Receipt Date: 20200417
  Transmission Date: 20200714
  Serious: No
  Sender: FDA-Public Use
  Company Number: US-TEVA-2020-US-1222085

PATIENT
  Age: 54 Year
  Sex: Female

DRUGS (2)
  1. ATENOLOL TEVA [Suspect]
     Active Substance: ATENOLOL
     Indication: PALPITATIONS
  2. ATENOLOL TEVA [Suspect]
     Active Substance: ATENOLOL
     Indication: BLOOD PRESSURE MEASUREMENT
     Dosage: 50 MILLIGRAM DAILY;
     Route: 065

REACTIONS (2)
  - Hypersomnia [Unknown]
  - Fatigue [Unknown]
